FAERS Safety Report 11380100 (Version 1)
Quarter: 2015Q3

REPORT INFORMATION
  Report Type: Spontaneous
  Country: US (occurrence: None)
  Receive Date: 20150813
  Receipt Date: 20150813
  Transmission Date: 20151125
  Serious: No
  Sender: FDA-Public Use
  Company Number: None

PATIENT
  Age: 20 Year
  Sex: Female
  Weight: 52.16 kg

DRUGS (1)
  1. MANTOUX [Suspect]
     Active Substance: TUBERCULIN PURIFIED PROTEIN DERIVATIVE (MANTOUX)
     Route: 023

REACTIONS (5)
  - Pallor [None]
  - Cold sweat [None]
  - Disorientation [None]
  - Nervous system disorder [None]
  - Tonic clonic movements [None]

NARRATIVE: CASE EVENT DATE: 20150811
